FAERS Safety Report 6526941-7 (Version None)
Quarter: 2010Q1

REPORT INFORMATION
  Report Type: 
  Country: None (occurrence: None)
  Receive Date: 20100105
  Receipt Date: 20091124
  Transmission Date: 20100710
  Serious: No
  Sender: FDA-Public Use
  Company Number: US-BAYER-200941157NA

PATIENT
  Sex: Male

DRUGS (2)
  1. NEXAVAR [Suspect]
     Indication: NEOPLASM MALIGNANT
     Route: 048
  2. LACTULOSE [Concomitant]

REACTIONS (1)
  - DIARRHOEA [None]
